FAERS Safety Report 18859654 (Version 1)
Quarter: 2021Q1

REPORT INFORMATION
  Report Type: Spontaneous
  Country: US (occurrence: US)
  Receive Date: 20210205
  Receipt Date: 20210205
  Transmission Date: 20210420
  Serious: No
  Sender: FDA-Public Use
  Company Number: None

PATIENT
  Age: 67 Year
  Sex: Female

DRUGS (1)
  1. HUMIRA [Suspect]
     Active Substance: ADALIMUMAB
     Indication: UVEITIS
     Dosage: INJECT 80MG (2 PENS) SUBCUTANEOUSLY ON DAY 1, 40MG (1 PEN) ON DAY 8, THEN 40MG EVERY OTHER WEE AS
     Route: 058
     Dates: start: 202007

REACTIONS (2)
  - COVID-19 [None]
  - Therapy interrupted [None]
